FAERS Safety Report 24415562 (Version 1)
Quarter: 2024Q4

REPORT INFORMATION
  Report Type: Report from Study
  Country: CA (occurrence: CA)
  Receive Date: 20241009
  Receipt Date: 20241009
  Transmission Date: 20250115
  Serious: Yes (Other)
  Sender: BIOCON
  Company Number: CA-BIOCON BIOLOGICS LIMITED-BBL2024007396

PATIENT

DRUGS (2)
  1. HULIO [Suspect]
     Active Substance: ADALIMUMAB-FKJP
     Indication: Rheumatoid arthritis
     Dosage: UNK UNK, Q2W (SOLUTION)
     Route: 058
  2. HULIO [Suspect]
     Active Substance: ADALIMUMAB-FKJP
     Dosage: 40 MILLIGRAM, QW (SOLUTION)
     Route: 058

REACTIONS (8)
  - Rheumatoid arthritis [Unknown]
  - Lower respiratory tract congestion [Unknown]
  - Arthralgia [Unknown]
  - Tonsillitis [Unknown]
  - Illness [Unknown]
  - Nasopharyngitis [Unknown]
  - Product dispensing error [Unknown]
  - Off label use [Unknown]
